FAERS Safety Report 17767528 (Version 2)
Quarter: 2021Q1

REPORT INFORMATION
  Report Type: Spontaneous
  Country: FR (occurrence: FR)
  Receive Date: 20200511
  Receipt Date: 20210205
  Transmission Date: 20210419
  Serious: Yes (Hospitalization)
  Sender: FDA-Public Use
  Company Number: FR-MYLANLABS-2020M1042759

PATIENT
  Age: 11 Year
  Sex: Male
  Weight: 19 kg

DRUGS (34)
  1. AZACITIDINE. [Suspect]
     Active Substance: AZACITIDINE
     Indication: ACUTE MYELOID LEUKAEMIA
     Dosage: 58 MILLIGRAM/SQ. METER
     Route: 058
     Dates: start: 20200102, end: 20200108
  2. VENETOCLAX. [Suspect]
     Active Substance: VENETOCLAX
     Dosage: 120 MILLIGRAM, QD
     Route: 065
     Dates: start: 20200113, end: 20200321
  3. VENETOCLAX. [Suspect]
     Active Substance: VENETOCLAX
     Dosage: 120 MILLIGRAM, QD
     Route: 050
     Dates: start: 20200101, end: 20200112
  4. ONDANSETRON [Concomitant]
     Active Substance: ONDANSETRON
     Indication: PROPHYLAXIS OF NAUSEA AND VOMITING
     Dosage: 4 MILLIGRAM
     Route: 041
     Dates: start: 20191230
  5. OSELTAMIVIR [Concomitant]
     Active Substance: OSELTAMIVIR
     Indication: INFLUENZA
     Dosage: 60 MILLIGRAM
     Route: 048
     Dates: start: 20200221
  6. LEVOCETIRIZINE [Concomitant]
     Active Substance: LEVOCETIRIZINE
     Indication: PROPHYLAXIS
     Dosage: 5 MILLIGRAM
     Route: 048
     Dates: start: 20191230
  7. VENETOCLAX. [Suspect]
     Active Substance: VENETOCLAX
     Indication: ACUTE MYELOID LEUKAEMIA
     Dosage: 1 DOSAGE FORM, QD
     Route: 050
     Dates: start: 20191230, end: 20191230
  8. TRANEXAMIC ACID. [Concomitant]
     Active Substance: TRANEXAMIC ACID
     Indication: TOOTH LOSS
     Dosage: 16 GRAM
     Route: 061
     Dates: start: 20200113
  9. ZINC. [Concomitant]
     Active Substance: ZINC
     Indication: DENTAL DISORDER PROPHYLAXIS
     Dosage: 300 MILLILITER
     Route: 061
     Dates: start: 20191230
  10. POLARAMINE [Concomitant]
     Active Substance: DEXCHLORPHENIRAMINE MALEATE
     Dosage: 2.5 MILLIGRAM, QD
     Route: 041
     Dates: start: 20200228, end: 20200305
  11. AZACITIDINE. [Suspect]
     Active Substance: AZACITIDINE
     Dosage: 60 MILLIGRAM/SQ. METER
     Route: 058
     Dates: start: 20200130, end: 20200227
  12. AZACITIDINE. [Suspect]
     Active Substance: AZACITIDINE
     Dosage: 58 MILLIGRAM/SQ. METER
     Route: 058
     Dates: start: 20200310, end: 20200316
  13. VENETOCLAX. [Suspect]
     Active Substance: VENETOCLAX
     Dosage: 120 MILLIGRAM
     Route: 065
     Dates: start: 20200325
  14. VENETOCLAX. [Suspect]
     Active Substance: VENETOCLAX
     Dosage: 120 MILLIGRAM
     Route: 065
     Dates: start: 20200101, end: 20200321
  15. VENETOCLAX. [Suspect]
     Active Substance: VENETOCLAX
     Dosage: 120 MILLIGRAM
     Route: 065
     Dates: start: 20200324
  16. ONDANSETRON [Concomitant]
     Active Substance: ONDANSETRON
     Indication: NAUSEA
     Dosage: 8 MILLIGRAM
     Route: 048
     Dates: start: 20200224
  17. ZINC. [Concomitant]
     Active Substance: ZINC
     Indication: PROPHYLAXIS
  18. HYDROCORTISONE. [Concomitant]
     Active Substance: HYDROCORTISONE
     Indication: PROPHYLAXIS
     Dosage: 50 MILLIGRAM, QOD
     Route: 041
     Dates: start: 20200103
  19. DEXTROSE IN WATER [Concomitant]
     Active Substance: DEXTROSE\WATER
     Indication: PROPHYLAXIS
     Dosage: 17250 MILLILITER
     Route: 041
     Dates: start: 20191230, end: 20200109
  20. VENETOCLAX. [Suspect]
     Active Substance: VENETOCLAX
     Dosage: 60 MILLIGRAM
     Route: 050
     Dates: start: 20191231, end: 20191231
  21. VENETOCLAX. [Suspect]
     Active Substance: VENETOCLAX
     Dosage: 30 MILLIGRAM
     Route: 050
     Dates: start: 20191230, end: 20191230
  22. SODIUM BICARBONATE. [Concomitant]
     Active Substance: SODIUM BICARBONATE
     Indication: DENTAL DISORDER PROPHYLAXIS
     Dosage: 300 MILLILITER
     Route: 061
     Dates: start: 20191230
  23. POLARAMINE [Concomitant]
     Active Substance: DEXCHLORPHENIRAMINE MALEATE
     Indication: PROPHYLAXIS
     Dosage: 2.5 MILLIGRAM, QOD
     Route: 041
     Dates: start: 20200103
  24. RASBURICASE [Concomitant]
     Active Substance: RASBURICASE
     Indication: PROPHYLAXIS
     Dosage: 3 MILLIGRAM
     Route: 065
     Dates: start: 20191230, end: 20191230
  25. AZACITIDINE. [Suspect]
     Active Substance: AZACITIDINE
     Dosage: 75 MILLIGRAM
     Route: 041
     Dates: start: 20200102, end: 20200316
  26. VENETOCLAX. [Suspect]
     Active Substance: VENETOCLAX
     Dosage: 120 MILLIGRAM, QD
     Route: 050
     Dates: start: 20200101, end: 20200226
  27. MICAFUNGIN. [Concomitant]
     Active Substance: MICAFUNGIN SODIUM
     Indication: NEUTROPENIA
     Dosage: 120 MILLIGRAM
     Route: 041
     Dates: start: 20200127
  28. CHLORHEXIDINE [Concomitant]
     Active Substance: CHLORHEXIDINE
     Dosage: 300 MILLILITER, QD
     Route: 061
     Dates: start: 20191230
  29. BACTRIM [Concomitant]
     Active Substance: SULFAMETHOXAZOLE\TRIMETHOPRIM
     Indication: PROPHYLAXIS
     Dosage: 500 MILLIGRAM, QD
     Route: 041
     Dates: start: 20191230
  30. PANTOPRAZOLE [Concomitant]
     Active Substance: PANTOPRAZOLE
     Indication: PROPHYLAXIS
     Dosage: 20 MILLIGRAM, QD
     Route: 048
     Dates: start: 20200227
  31. MYCAMINE [Concomitant]
     Active Substance: MICAFUNGIN SODIUM
     Indication: ANTIFUNGAL PROPHYLAXIS
     Dosage: 40 MILLIGRAM
     Route: 041
     Dates: start: 20200127
  32. VENETOCLAX. [Suspect]
     Active Substance: VENETOCLAX
     Dosage: 60 MILLIGRAM, QD
     Dates: start: 20191231, end: 20200112
  33. CHLORHEXIDINE [Concomitant]
     Active Substance: CHLORHEXIDINE
     Indication: DENTAL DISORDER PROPHYLAXIS
     Dosage: 2980 MILLILITER
     Route: 061
     Dates: start: 20191230
  34. PANTOPRAZOLE [Concomitant]
     Active Substance: PANTOPRAZOLE
     Dosage: 2.5 MILLIGRAM
     Dates: start: 20200228, end: 20200305

REACTIONS (5)
  - Pyrexia [Not Recovered/Not Resolved]
  - Coronavirus infection [Recovered/Resolved]
  - Vomiting [Recovered/Resolved]
  - Diarrhoea [Recovered/Resolved]
  - Febrile neutropenia [Recovered/Resolved]

NARRATIVE: CASE EVENT DATE: 20200321
